FAERS Safety Report 8974197 (Version 2)
Quarter: 2013Q1

REPORT INFORMATION
  Report Type: Spontaneous
  Country: US (occurrence: None)
  Receive Date: 20121213
  Receipt Date: 20130129
  Transmission Date: 20140127
  Serious: Yes (Hospitalization, Other)
  Sender: FDA-Public Use
  Company Number: ADR-2012-02218

PATIENT
  Age: 59 Year
  Sex: Female

DRUGS (1)
  1. LIORESAL INTRATHECAL [Suspect]
     Indication: MUSCLE SPASTICITY

REACTIONS (5)
  - Pain [None]
  - Skin burning sensation [None]
  - Muscle spasticity [None]
  - Injury [None]
  - Drug withdrawal syndrome [None]
